FAERS Safety Report 21297359 (Version 1)
Quarter: 2022Q3

REPORT INFORMATION
  Report Type: Spontaneous
  Country: CA (occurrence: CA)
  Receive Date: 20220906
  Receipt Date: 20220906
  Transmission Date: 20221026
  Serious: Yes (Life-Threatening, Hospitalization, Other)
  Sender: FDA-Public Use
  Company Number: CA-TEVA-2022-CA-2069483

PATIENT
  Age: 27 Year
  Sex: Male
  Weight: 120 kg

DRUGS (2)
  1. HYDROMORPHONE [Suspect]
     Active Substance: HYDROMORPHONE
     Indication: Pain management
     Dosage: 1.0 DAYS
     Route: 048
  2. ACETAMINOPHEN [Concomitant]
     Active Substance: ACETAMINOPHEN
     Indication: Product used for unknown indication

REACTIONS (9)
  - Acute pulmonary oedema [Recovered/Resolved]
  - Agitation [Recovered/Resolved]
  - Delirium [Recovered/Resolved]
  - Endotracheal intubation [Recovered/Resolved]
  - Hypoxia [Recovered/Resolved]
  - Paralysis [Recovered/Resolved]
  - Restlessness [Recovered/Resolved]
  - Sinus tachycardia [Recovered/Resolved]
  - Ventricular hypokinesia [Recovered/Resolved]
